FAERS Safety Report 16207492 (Version 8)
Quarter: 2022Q2

REPORT INFORMATION
  Report Type: Spontaneous
  Country: US (occurrence: US)
  Receive Date: 20190417
  Receipt Date: 20220510
  Transmission Date: 20220720
  Serious: No
  Sender: FDA-Public Use
  Company Number: US-PFIZER INC-2018409185

PATIENT
  Age: 74 Year
  Sex: Female
  Weight: 62.6 kg

DRUGS (13)
  1. LYRICA [Suspect]
     Active Substance: PREGABALIN
     Indication: Polyneuropathy
     Dosage: 50 MG, 2X/DAY, (1 CAPSULE 2 TIMES A DAY)
     Route: 048
  2. LYRICA [Suspect]
     Active Substance: PREGABALIN
     Indication: Limb discomfort
     Dosage: 25 MG, 3X/DAY, [1 CAPSULE 3 (THREE) TIMES DAILY)]
     Route: 048
     Dates: start: 20190325, end: 2019
  3. LYRICA [Suspect]
     Active Substance: PREGABALIN
     Indication: Glucose tolerance impaired
     Dosage: 25 MG, 3X/DAY, [1 CAPSULE 3 (THREE) TIMES DAILY]
     Route: 048
     Dates: start: 20190630
  4. LYRICA [Suspect]
     Active Substance: PREGABALIN
     Indication: Pain in extremity
     Dosage: 25 MG, DAILY
  5. LYRICA [Suspect]
     Active Substance: PREGABALIN
     Dosage: 25 MG, 2X/DAY (INCREASE TO 1 CAPSULE TWICE DAILY AFTER 1 MONTH AS NECESSARY)
     Route: 048
  6. LYRICA [Suspect]
     Active Substance: PREGABALIN
     Dosage: 100 MG, DAILY (25 MG (1 CAPSULE IN THE MORNING AND EARLY AFTERNOON AND 2 IN THE EVENING))
     Route: 048
  7. LYRICA [Suspect]
     Active Substance: PREGABALIN
     Dosage: 50 MG, 1X/DAY (TAKE 1 CAPSULE (50 MG TOTAL) BY MOUTH DAILY AT NIGHT)
     Route: 048
  8. LYRICA [Suspect]
     Active Substance: PREGABALIN
     Dosage: 25 MG, 4X/DAY, [SIG: 1 IN THE MORNING, 1 IN THE AFTERNOON, AND 2 AT NIGHTTIME]
  9. LEFLUNOMIDE [Concomitant]
     Active Substance: LEFLUNOMIDE
     Indication: Rheumatoid arthritis
     Dosage: 20 MG, DAILY
  10. CALCIUM [Concomitant]
     Active Substance: CALCIUM
     Indication: Supplementation therapy
     Dosage: 600 MG, DAILY
  11. VITAMIN D3 [Concomitant]
     Active Substance: CHOLECALCIFEROL
     Indication: Supplementation therapy
     Dosage: 1000 IU, DAILY
  12. VITAMIN B12 [Concomitant]
     Active Substance: CYANOCOBALAMIN
     Indication: Supplementation therapy
     Dosage: 1000 UG, DAILY
  13. VALSARTAN [Concomitant]
     Active Substance: VALSARTAN
     Indication: Blood pressure abnormal
     Dosage: 0.5 DF, DAILY, (ONE HALF A TABLET DAILY)

REACTIONS (3)
  - Balance disorder [Not Recovered/Not Resolved]
  - Gait disturbance [Not Recovered/Not Resolved]
  - Confusional state [Unknown]
